FAERS Safety Report 7993923-8 (Version None)
Quarter: 2011Q4

REPORT INFORMATION
  Report Type: 
  Country: None (occurrence: None)
  Receive Date: 20111215
  Receipt Date: 20111204
  Transmission Date: 20120403
  Serious: Yes (Other)
  Sender: FDA-Public Use
  Company Number: GER/GER/11/0021889

PATIENT
  Age: 76 Year
  Sex: Male
  Weight: 85 kg

DRUGS (1)
  1. ENALAPRIL MALEATE AND HYDROCHLOROTHIAZIDE [Suspect]
     Indication: PRODUCT USED FOR UNKNOWN INDICATION
     Dosage: 40 DOSAGE FORMS, 1 IN 1 ONCE, ORAL
     Route: 048
     Dates: start: 20111109

REACTIONS (1)
  - SOMNOLENCE [None]
